FAERS Safety Report 18056770 (Version 2)
Quarter: 2020Q4

REPORT INFORMATION
  Report Type: Spontaneous
  Country: US (occurrence: US)
  Receive Date: 20200722
  Receipt Date: 20201221
  Transmission Date: 20210113
  Serious: Yes (Hospitalization, Disabling)
  Sender: FDA-Public Use
  Company Number: US-009507513-2007USA006103

PATIENT
  Age: 85 Year
  Sex: Male

DRUGS (1)
  1. BELSOMRA [Suspect]
     Active Substance: SUVOREXANT
     Indication: SLEEP DISORDER
     Dosage: ONLY ONE TABLET WAS TAKEN
     Route: 048
     Dates: start: 202003, end: 202003

REACTIONS (9)
  - Drug ineffective [Unknown]
  - Quarantine [Unknown]
  - Ill-defined disorder [Unknown]
  - Pain [Unknown]
  - Joint dislocation [Recovering/Resolving]
  - Prescription drug used without a prescription [Unknown]
  - Emotional distress [Unknown]
  - Suspected COVID-19 [Unknown]
  - Malaise [Unknown]

NARRATIVE: CASE EVENT DATE: 2020
